FAERS Safety Report 18012850 (Version 6)
Quarter: 2021Q3

REPORT INFORMATION
  Report Type: Report from Study
  Country: US (occurrence: US)
  Receive Date: 20200713
  Receipt Date: 20210901
  Transmission Date: 20211014
  Serious: Yes (Other)
  Sender: FDA-Public Use
  Company Number: US-BIOGEN-2020BI00895976

PATIENT
  Sex: Female
  Weight: 74.39 kg

DRUGS (18)
  1. MELATONIN [Concomitant]
     Active Substance: MELATONIN
     Indication: PRODUCT USED FOR UNKNOWN INDICATION
     Dosage: TAKE 2 TABLETS (10 MG) BY MOUTH AT BEDTIME
     Route: 048
  2. TYSABRI [Suspect]
     Active Substance: NATALIZUMAB
     Indication: MULTIPLE SCLEROSIS
     Route: 065
     Dates: start: 20200618
  3. CYMBALTA [Concomitant]
     Active Substance: DULOXETINE HYDROCHLORIDE
     Indication: PRODUCT USED FOR UNKNOWN INDICATION
     Dosage: TAKE 30 MG BY MOUTH DAILY
     Route: 048
  4. PRINIVIL [Concomitant]
     Active Substance: LISINOPRIL
     Indication: HYPERTENSIVE HEART DISEASE
     Dosage: TAKE 40 MG BY MOUTH DAILY
     Route: 048
  5. TYSABRI [Suspect]
     Active Substance: NATALIZUMAB
     Route: 042
     Dates: start: 20200601, end: 202011
  6. MIRAPEX [Concomitant]
     Active Substance: PRAMIPEXOLE DIHYDROCHLORIDE
     Indication: PRODUCT USED FOR UNKNOWN INDICATION
     Dosage: TAKE 0.25 MG BY MOUTH DAILY
     Route: 048
  7. TYSABRI [Suspect]
     Active Substance: NATALIZUMAB
     Dosage: INFUSED OVER 1 HOUR
     Route: 042
  8. FOSAMAX [Concomitant]
     Active Substance: ALENDRONATE SODIUM
     Indication: PRODUCT USED FOR UNKNOWN INDICATION
     Dosage: TAKE 1 TABLET (70 MG) BY MOUTH DAILY
     Route: 048
  9. QUESTRAN [Concomitant]
     Active Substance: CHOLESTYRAMINE
     Indication: PRODUCT USED FOR UNKNOWN INDICATION
     Dosage: TAKE 1 PACKET BY MOUTH 2 TIMES DAILY WITH MEALS
     Route: 048
  10. LOPRESSOR [Concomitant]
     Active Substance: METOPROLOL TARTRATE
     Indication: HYPERTENSIVE HEART DISEASE
     Dosage: TAKE 50 MG BY MOUTH 2 TIMES A DAY
     Route: 048
  11. TIMOPTIC [Concomitant]
     Active Substance: TIMOLOL MALEATE
     Indication: PRODUCT USED FOR UNKNOWN INDICATION
     Dosage: PLACE 1 DROP INTO BOTH EYES 2 TIMES A DAY
     Route: 065
  12. TRICOR [Concomitant]
     Active Substance: FENOFIBRATE
     Indication: HYPERLIPIDAEMIA
     Dosage: TAKE 160 MG BY MOUTH DAILY
     Route: 048
  13. NEURONTIN [Concomitant]
     Active Substance: GABAPENTIN
     Indication: PRODUCT USED FOR UNKNOWN INDICATION
     Dosage: TAKE 400 MG BY MOUTH 3 TIMES DAILY
     Route: 048
  14. FLONASE [Concomitant]
     Active Substance: FLUTICASONE PROPIONATE
     Indication: PRODUCT USED FOR UNKNOWN INDICATION
     Dosage: INHALE 1 SPRAY IN EACH NOSTRIL 2 TIMES A DAY
     Route: 065
  15. LIPITOR [Concomitant]
     Active Substance: ATORVASTATIN CALCIUM
     Indication: HYPERLIPIDAEMIA
     Dosage: TAKE 1 TABLET (40 MG) BY MOUTH DAILY
     Route: 048
  16. BRIMONIDINE [Concomitant]
     Active Substance: BRIMONIDINE TARTRATE
     Indication: PRODUCT USED FOR UNKNOWN INDICATION
     Dosage: PLACE 1 DROP INTO BOTH EYES AT BEDTIME
     Route: 047
  17. ATIVAN [Concomitant]
     Active Substance: LORAZEPAM
     Indication: ANXIETY
     Dosage: TAKE 1 TABLET (0.5 MG) BY MOUTH AT BEDTIME AS NEEDED FOR ANXIETY
     Route: 048
  18. PRED FORTE [Concomitant]
     Active Substance: PREDNISOLONE ACETATE
     Indication: PRODUCT USED FOR UNKNOWN INDICATION
     Dosage: PLACE 1 DROP INTO BOTH EYES 2 TIMES A DAY
     Route: 065

REACTIONS (3)
  - Polyneuropathy [Unknown]
  - Blindness [Not Recovered/Not Resolved]
  - Optic neuritis [Not Recovered/Not Resolved]
